FAERS Safety Report 23928492 (Version 1)
Quarter: 2024Q2

REPORT INFORMATION
  Report Type: Spontaneous
  Country: US (occurrence: US)
  Receive Date: 20240531
  Receipt Date: 20240531
  Transmission Date: 20240715
  Serious: No
  Sender: FDA-Public Use
  Company Number: US-RADIUS HEALTH INC.-2023US002086

PATIENT
  Age: 64 Year
  Sex: Female

DRUGS (3)
  1. TYMLOS [Suspect]
     Active Substance: ABALOPARATIDE
     Indication: Osteoporosis
     Dosage: 80 MICROGRAM, QD
     Route: 058
     Dates: start: 20230404
  2. TYMLOS [Suspect]
     Active Substance: ABALOPARATIDE
     Indication: Osteoporotic fracture
  3. TYMLOS [Suspect]
     Active Substance: ABALOPARATIDE
     Indication: Senile osteoporosis

REACTIONS (9)
  - Myalgia [Unknown]
  - Flank pain [Unknown]
  - Swelling [Unknown]
  - Headache [Unknown]
  - Abdominal distension [Unknown]
  - Arthralgia [Unknown]
  - Abdominal pain [Unknown]
  - Heart rate increased [Unknown]
  - Bone pain [Unknown]

NARRATIVE: CASE EVENT DATE: 20230401
